FAERS Safety Report 8859166 (Version 1)
Quarter: 2012Q4

REPORT INFORMATION
  Report Type: Spontaneous
  Country: US (occurrence: None)
  Receive Date: 20121024
  Receipt Date: 20121024
  Transmission Date: 20130627
  Serious: No
  Sender: FDA-Public Use
  Company Number: None

PATIENT
  Age: 58 Year
  Sex: Female
  Weight: 55.79 kg

DRUGS (8)
  1. METHYLPREDNISOLONE [Suspect]
     Indication: OSTEOARTHRITIS
     Dosage: 2 different injections IM
     Route: 030
     Dates: start: 20120824, end: 20120924
  2. METHYLPREDNISOLONE [Suspect]
     Indication: BURSITIS
     Dosage: 2 different injections IM
     Route: 030
     Dates: start: 20120824, end: 20120924
  3. METHYLPREDNISOLONE [Suspect]
     Indication: MUSCLE PAIN
     Dosage: 2 different injections IM
     Route: 030
     Dates: start: 20120824, end: 20120924
  4. METHYLPREDNISOLONE [Suspect]
     Indication: INJECTION
     Dosage: 2 different injections IM
     Route: 030
     Dates: start: 20120824, end: 20120924
  5. METHYLPREDNISOLONE [Suspect]
     Indication: OSTEOARTHRITIS
     Dosage: 1 injection intra-articular
     Route: 014
  6. METHYLPREDNISOLONE [Suspect]
     Indication: BURSITIS
     Dosage: 1 injection intra-articular
     Route: 014
  7. METHYLPREDNISOLONE [Suspect]
     Indication: MUSCLE PAIN
     Dosage: 1 injection intra-articular
     Route: 014
  8. METHYLPREDNISOLONE [Suspect]
     Indication: INJECTION
     Dosage: 1 injection intra-articular
     Route: 014

REACTIONS (3)
  - Pyrexia [None]
  - Chills [None]
  - Viral infection [None]
